FAERS Safety Report 18942400 (Version 1)
Quarter: 2021Q1

REPORT INFORMATION
  Report Type: Spontaneous
  Country: FR (occurrence: FR)
  Receive Date: 20210225
  Receipt Date: 20210225
  Transmission Date: 20210420
  Serious: Yes (Other)
  Sender: FDA-Public Use
  Company Number: FR-ASTRAZENECA-2021A073298

PATIENT
  Sex: Female

DRUGS (1)
  1. BENRALIZUMAB. [Suspect]
     Active Substance: BENRALIZUMAB
     Indication: ASTHMA
     Route: 058

REACTIONS (2)
  - Drug ineffective [Unknown]
  - Eosinophilic granulomatosis with polyangiitis [Unknown]
